FAERS Safety Report 9526058 (Version 1)
Quarter: 2013Q3

REPORT INFORMATION
  Report Type: Spontaneous
  Country: US (occurrence: US)
  Receive Date: 20130916
  Receipt Date: 20130916
  Transmission Date: 20140515
  Serious: Yes (Other)
  Sender: FDA-Public Use
  Company Number: US-PFIZER INC-2013261528

PATIENT
  Sex: 0

DRUGS (3)
  1. XANAX [Suspect]
     Indication: DEPRESSION
     Dosage: 4-10 MG 1X/DAY
     Dates: start: 2003
  2. PROZAC [Suspect]
     Indication: DEPRESSION
     Dosage: 3-20MG A DAY
     Dates: start: 1993
  3. AVONEX [Suspect]
     Dosage: 1 DF, WEEKLY (SHOT ONCE A WEEK)

REACTIONS (2)
  - Multiple sclerosis [Unknown]
  - Drug ineffective [Unknown]
